FAERS Safety Report 25353769 (Version 1)
Quarter: 2025Q2

REPORT INFORMATION
  Report Type: Spontaneous
  Country: US (occurrence: US)
  Receive Date: 20250523
  Receipt Date: 20250523
  Transmission Date: 20250717
  Serious: No
  Sender: MYLAN
  Company Number: US-MYLANLABS-2025M1040078

PATIENT
  Age: 48 Year
  Sex: Female
  Weight: 56.7 kg

DRUGS (1)
  1. ESTRADIOL TRANSDERMAL SYSTEM [Suspect]
     Active Substance: ESTRADIOL
     Indication: Hormone therapy
     Dosage: 0.0375 MILLIGRAM, QD (PER DAY, TWICE A WEEK)

REACTIONS (6)
  - Hypersensitivity [Unknown]
  - Application site scar [Unknown]
  - Application site mass [Unknown]
  - Application site erythema [Unknown]
  - Application site pruritus [Unknown]
  - Drug ineffective [Unknown]

NARRATIVE: CASE EVENT DATE: 20250401
